FAERS Safety Report 9917564 (Version 2)
Quarter: 2014Q1

REPORT INFORMATION
  Report Type: Report from Study
  Country: US (occurrence: US)
  Receive Date: 20140221
  Receipt Date: 20140326
  Transmission Date: 20141002
  Serious: Yes (Hospitalization, Other)
  Sender: FDA-Public Use
  Company Number: US-PURDUE-USA-2014-0111369

PATIENT
  Age: 64 Year
  Sex: Female
  Weight: 72.2 kg

DRUGS (22)
  1. OXY CR TAB [Suspect]
     Indication: CANCER PAIN
     Dosage: 80 MG, TID
     Route: 048
     Dates: start: 20140207
  2. LORTAB                             /00607101/ [Concomitant]
     Indication: PRODUCT USED FOR UNKNOWN INDICATION
     Dosage: UNK
  3. LORAZEPAM [Concomitant]
     Indication: ANXIETY
     Dosage: 1 MG, Q6H
     Dates: start: 20140204
  4. NORCO [Concomitant]
     Indication: PAIN
     Dosage: 10/325MG, 1-2 TABS
     Dates: start: 20131204
  5. BUPROPION [Concomitant]
     Indication: PRODUCT USED FOR UNKNOWN INDICATION
     Dosage: 150 MG, DAILY
     Dates: start: 20140204
  6. BUPROPION [Concomitant]
     Dosage: 300 MG, DAILY
     Dates: start: 20131009
  7. COUMADIN                           /00014802/ [Concomitant]
     Indication: PRODUCT USED FOR UNKNOWN INDICATION
  8. AUGMENTIN [Concomitant]
     Indication: PRODUCT USED FOR UNKNOWN INDICATION
  9. CULTURELLE [Concomitant]
     Indication: PRODUCT USED FOR UNKNOWN INDICATION
  10. DEXAMETHASONE [Concomitant]
     Indication: PRODUCT USED FOR UNKNOWN INDICATION
     Dosage: 4 MG, DAILY
     Dates: start: 20140204
  11. FUROSEMIDE [Concomitant]
     Indication: SWELLING
     Dosage: 40 MG, 1-2 TABS
     Dates: start: 20140115
  12. POTASSIUM [Concomitant]
     Indication: ELECTROLYTE SUBSTITUTION THERAPY
     Dosage: 1 TABLET, WITH FUROSEMIDE DOSE
  13. HYDROCODONE BITARTRATE AND IBUPROFEN [Concomitant]
     Indication: PRODUCT USED FOR UNKNOWN INDICATION
     Dosage: 10/200MG TABS
     Dates: start: 20140122
  14. KLOR-CON M20 [Concomitant]
     Indication: PRODUCT USED FOR UNKNOWN INDICATION
     Dosage: 1 TAB WITH LASIX
     Dates: start: 20140115
  15. MEGACE [Concomitant]
     Indication: DECREASED APPETITE
     Dosage: UNK
     Dates: start: 20130821
  16. NYSTATIN [Concomitant]
     Indication: PRODUCT USED FOR UNKNOWN INDICATION
  17. ONDANSETRON [Concomitant]
     Indication: NAUSEA
     Dosage: 8 MG, Q8H
     Dates: start: 20140123
  18. ONDANSETRON [Concomitant]
     Indication: VOMITING
  19. PROMETHAZINE [Concomitant]
     Indication: NAUSEA
     Dosage: 25 MG, Q4H
     Dates: start: 20130904
  20. PROMETHAZINE [Concomitant]
     Indication: VOMITING
  21. WARFARIN [Concomitant]
     Indication: PRODUCT USED FOR UNKNOWN INDICATION
     Dosage: 5 MG, UNK
     Dates: start: 20131112
  22. METRONIDAZOLE [Concomitant]
     Indication: PRODUCT USED FOR UNKNOWN INDICATION

REACTIONS (6)
  - Pneumonia [Recovering/Resolving]
  - Septic shock [Unknown]
  - Respiratory failure [Recovered/Resolved]
  - Clostridium difficile colitis [Unknown]
  - Adrenal insufficiency [Unknown]
  - Asthenia [Unknown]
